FAERS Safety Report 8676247 (Version 2)
Quarter: 2013Q4

REPORT INFORMATION
  Report Type: Spontaneous
  Country: US (occurrence: US)
  Receive Date: 20120720
  Receipt Date: 20131101
  Transmission Date: 20140711
  Serious: No
  Sender: FDA-Public Use
  Company Number: US-009507513-1207USA005248

PATIENT
  Sex: Female

DRUGS (1)
  1. NASONEX [Suspect]
     Dosage: 1 DF, QD
     Route: 045
     Dates: start: 2006

REACTIONS (2)
  - Drug dose omission [Unknown]
  - Product quality issue [Unknown]
